FAERS Safety Report 9351428 (Version 1)
Quarter: 2013Q2

REPORT INFORMATION
  Report Type: Spontaneous
  Country: US (occurrence: US)
  Receive Date: 20130617
  Receipt Date: 20130617
  Transmission Date: 20140414
  Serious: Yes (Death, Other)
  Sender: FDA-Public Use
  Company Number: US-ACTAVIS-2013-10182

PATIENT
  Age: 69 Year
  Sex: Male

DRUGS (2)
  1. FLUDARABINE PHOSPHATE (ATLLC) [Suspect]
     Indication: CHRONIC LYMPHOCYTIC LEUKAEMIA
     Dosage: UNK
     Route: 065
     Dates: start: 2002
  2. FLUDARABINE PHOSPHATE (ATLLC) [Suspect]
     Dosage: UNK
     Route: 065
     Dates: start: 2005

REACTIONS (4)
  - Chronic lymphocytic leukaemia transformation [Fatal]
  - Richter^s syndrome [Fatal]
  - Lymphadenopathy [None]
  - Anaemia [None]
